FAERS Safety Report 20925822 (Version 1)
Quarter: 2022Q2

REPORT INFORMATION
  Report Type: Spontaneous
  Country: ES (occurrence: ES)
  Receive Date: 20220607
  Receipt Date: 20220607
  Transmission Date: 20220720
  Serious: Yes (Hospitalization)
  Sender: FDA-Public Use
  Company Number: None

PATIENT
  Age: 56 Year
  Sex: Female

DRUGS (2)
  1. METHOTREXATE SODIUM [Suspect]
     Active Substance: METHOTREXATE SODIUM
     Dosage: 3 TABLETS, WEEKLY
     Dates: start: 20171113, end: 20220524
  2. HYRIMOZ [Suspect]
     Active Substance: ADALIMUMAB-ADAZ
     Indication: Rheumatoid arthritis
     Dosage: 40 MG/14 DAYS
     Dates: start: 20190905, end: 20220524

REACTIONS (1)
  - Oesophageal neoplasm [Recovering/Resolving]

NARRATIVE: CASE EVENT DATE: 20220524
